FAERS Safety Report 13792561 (Version 7)
Quarter: 2018Q4

REPORT INFORMATION
  Report Type: Report from Study
  Country: US (occurrence: US)
  Receive Date: 20170725
  Receipt Date: 20181009
  Transmission Date: 20190204
  Serious: Yes (Other)
  Sender: FDA-Public Use
  Company Number: PHEH2017US022989

PATIENT
  Sex: Female

DRUGS (2)
  1. TRAVOPROST. [Suspect]
     Active Substance: TRAVOPROST
     Indication: PRODUCT USED FOR UNKNOWN INDICATION
     Dosage: UNK
     Route: 065
  2. TRAVATAN Z [Suspect]
     Active Substance: TRAVOPROST
     Indication: PRODUCT USED FOR UNKNOWN INDICATION
     Dosage: 0.005 ML, INSTILL 1 DROP INTO LEFT EYE AT BEDTIME DAILY
     Route: 047

REACTIONS (3)
  - Intraocular pressure increased [Unknown]
  - Glaucoma [Unknown]
  - Eye infection [Unknown]
